FAERS Safety Report 7482517-9 (Version None)
Quarter: 2011Q2

REPORT INFORMATION
  Report Type: 
  Country: None (occurrence: None)
  Receive Date: 20110516
  Receipt Date: 20110506
  Transmission Date: 20111010
  Serious: Yes (Hospitalization)
  Sender: FDA-Public Use
  Company Number: FR-ASTRAZENECA-2011SE27416

PATIENT
  Sex: Female

DRUGS (10)
  1. KETALAR [Suspect]
     Indication: ANAESTHESIA
     Route: 050
     Dates: start: 20110107, end: 20110107
  2. EPHEDRINE SUL CAP [Suspect]
     Indication: ANAESTHESIA
     Route: 050
     Dates: start: 20110107, end: 20110107
  3. MIDAZOLAM HYDROCHLORIDE [Suspect]
     Indication: ANAESTHESIA
     Route: 050
     Dates: start: 20110107, end: 20110107
  4. SUFENTA PRESERVATIVE FREE [Suspect]
     Indication: ANAESTHESIA
     Route: 050
     Dates: start: 20110107, end: 20110107
  5. EFFEXOR [Concomitant]
     Route: 048
  6. LYSANXIA [Concomitant]
     Route: 048
  7. DIPRIVAN [Suspect]
     Indication: ANAESTHESIA
     Route: 050
     Dates: start: 20110107, end: 20110107
  8. SEVOFLURANE [Suspect]
     Indication: ANAESTHESIA
     Route: 055
     Dates: start: 20110107, end: 20110107
  9. SOLU-MEDROL [Suspect]
     Route: 050
     Dates: start: 20110107, end: 20110107
  10. ACETAMINOPHEN [Suspect]
     Route: 042
     Dates: start: 20110107, end: 20110107

REACTIONS (1)
  - HEPATITIS [None]
